FAERS Safety Report 19882222 (Version 4)
Quarter: 2021Q4

REPORT INFORMATION
  Report Type: Report from Study
  Country: US (occurrence: US)
  Receive Date: 20210925
  Receipt Date: 20211126
  Transmission Date: 20220303
  Serious: No
  Sender: FDA-Public Use
  Company Number: NVSC2021US218325

PATIENT
  Sex: Female
  Weight: 61.224 kg

DRUGS (3)
  1. TREPROSTINIL [Suspect]
     Active Substance: TREPROSTINIL
     Indication: Pulmonary arterial hypertension
     Dosage: 67 NG/KG/MIN
     Route: 042
     Dates: start: 20210916
  2. REMODULIN [Suspect]
     Active Substance: TREPROSTINIL
     Indication: Product used for unknown indication
     Route: 042
  3. TADALAFIL [Concomitant]
     Active Substance: TADALAFIL
     Indication: Product used for unknown indication
     Route: 065

REACTIONS (8)
  - Malaise [Unknown]
  - Dizziness [Recovering/Resolving]
  - Blood pressure abnormal [Unknown]
  - Blood glucose fluctuation [Unknown]
  - Palpitations [Unknown]
  - Headache [Unknown]
  - Hypotension [Unknown]
  - Drug ineffective [Unknown]
